FAERS Safety Report 8609009-5 (Version None)
Quarter: 2012Q3

REPORT INFORMATION
  Report Type: 
  Country: None (occurrence: None)
  Receive Date: 20120821
  Receipt Date: 20120815
  Transmission Date: 20120928
  Serious: Yes (Hospitalization)
  Sender: FDA-Public Use
  Company Number: GB-GLAXOSMITHKLINE-B0765768A

PATIENT
  Sex: Female

DRUGS (38)
  1. POTASSIUM CHLORIDE [Suspect]
     Dosage: 40IUAX PER DAY
     Route: 048
     Dates: start: 20090901
  2. PREDNISONE [Suspect]
     Route: 048
  3. DICYCLOMINE [Suspect]
     Dosage: 40MG PER DAY
     Route: 048
     Dates: start: 20090701, end: 20090801
  4. PSYLLIUM [Concomitant]
     Dates: start: 20090101
  5. PHENOXYBENZAMINE [Concomitant]
     Dates: start: 20090101
  6. DIPHENOXYLATE HCL + ATROPINE SULFATE [Suspect]
     Indication: DIARRHOEA
     Route: 048
  7. DICYCLOMINE [Suspect]
     Dosage: 40MG PER DAY
     Route: 048
     Dates: start: 20090501
  8. METOLAZONE [Concomitant]
     Dates: start: 20090101
  9. METOPROLOL SUCCINATE [Concomitant]
  10. SUCRALFATE [Suspect]
     Dosage: 4G PER DAY
     Route: 048
  11. POTASSIUM CHLORIDE [Suspect]
     Route: 048
     Dates: start: 20090701
  12. LORAZEPAM [Suspect]
     Indication: SLEEP DISORDER
     Route: 048
  13. AMLODIPINE [Concomitant]
  14. EZETIMIBE [Concomitant]
  15. MEMANTINE HCL [Concomitant]
     Dates: start: 20090101
  16. MULTI-VITAMIN [Concomitant]
  17. ACETAMINOPHEN [Concomitant]
     Dates: start: 20090101
  18. CALCIUM + VITAMIN D [Concomitant]
  19. SACCHAROMYCES BOULARDII [Concomitant]
     Dates: start: 20090101
  20. LORAZEPAM [Suspect]
     Dosage: .5MG PER DAY
     Route: 048
     Dates: start: 20090501
  21. LEVALBUTEROL HCL [Concomitant]
     Dates: start: 20090101
  22. DIGOXIN [Suspect]
     Route: 048
  23. DIGOXIN [Suspect]
     Route: 048
  24. CARISOPRODOL [Suspect]
     Dosage: 1000MG PER DAY
  25. METAXALONE [Suspect]
     Dosage: 1600MG PER DAY
     Route: 048
  26. LEVOTHYROXINE SODIUM [Concomitant]
     Dates: start: 20090101
  27. VITAMIN D [Concomitant]
     Dates: start: 20090101
  28. FUROSEMIDE [Suspect]
  29. ASPIRIN [Concomitant]
     Dates: start: 20090501
  30. FENTANYL CITRATE [Concomitant]
     Dates: start: 20090101
  31. ESOMEPRAZOLE SODIUM [Concomitant]
     Dates: start: 20090501
  32. ACETAMINOPHEN [Concomitant]
  33. METOPROLOL TARTRATE [Concomitant]
     Dates: start: 20090101
  34. ROSUVASTATIN [Concomitant]
  35. TERIPARATIDE [Concomitant]
     Dates: start: 20090101
  36. SALMETEROL + FLUTICASONE [Suspect]
     Route: 054
     Dates: start: 20090513
  37. OMEPRAZOLE [Concomitant]
     Dates: start: 20090501
  38. HYDROCODONE [Concomitant]

REACTIONS (7)
  - DEHYDRATION [None]
  - DEPRESSION [None]
  - DELIRIUM [None]
  - URINARY TRACT INFECTION [None]
  - VISUAL IMPAIRMENT [None]
  - CONSTIPATION [None]
  - WEIGHT DECREASED [None]
